FAERS Safety Report 26050396 (Version 1)
Quarter: 2025Q4

REPORT INFORMATION
  Report Type: Spontaneous
  Country: US (occurrence: US)
  Receive Date: 20251116
  Receipt Date: 20251116
  Transmission Date: 20260117
  Serious: No
  Sender: TEVA
  Company Number: US-TEVA-VS-3389130

PATIENT
  Age: 83 Year
  Sex: Female

DRUGS (1)
  1. QVAR REDIHALER [Suspect]
     Active Substance: BECLOMETHASONE DIPROPIONATE
     Indication: Bronchiectasis
     Dosage: TWO PUFFS TWICE DAILY
     Route: 055

REACTIONS (8)
  - Nausea [Unknown]
  - Respiration abnormal [Unknown]
  - Wrong technique in device usage process [Unknown]
  - Product taste abnormal [Unknown]
  - Hypoacusis [Unknown]
  - Taste disorder [Unknown]
  - Nervousness [Unknown]
  - Retching [Unknown]
